FAERS Safety Report 20152542 (Version 1)
Quarter: 2021Q4

REPORT INFORMATION
  Report Type: Spontaneous
  Country: CN (occurrence: CN)
  Receive Date: 20211206
  Receipt Date: 20211206
  Transmission Date: 20220303
  Serious: Yes (Hospitalization)
  Sender: FDA-Public Use
  Company Number: CN-ABBVIE-21K-035-4182033-00

PATIENT
  Age: 64 Year
  Sex: Female
  Weight: 62 kg

DRUGS (4)
  1. VALPROATE SODIUM [Suspect]
     Active Substance: VALPROATE SODIUM
     Indication: Seizure prophylaxis
     Route: 041
     Dates: start: 20200904, end: 20200916
  2. NIMODIPINE [Suspect]
     Active Substance: NIMODIPINE
     Indication: Prophylaxis
     Dosage: 0.8-1.6 MG/H CONTINUOUS IV PUMP IV DRIP
     Route: 041
     Dates: start: 20200904, end: 20200913
  3. NIMODIPINE [Suspect]
     Active Substance: NIMODIPINE
     Indication: Infection
  4. AMOXICILLIN\CLAVULANATE POTASSIUM [Suspect]
     Active Substance: AMOXICILLIN\CLAVULANATE POTASSIUM
     Indication: Infection prophylaxis
     Route: 041
     Dates: start: 20200905, end: 20200910

REACTIONS (2)
  - Pigmentation disorder [Recovering/Resolving]
  - Rash [Recovered/Resolved]

NARRATIVE: CASE EVENT DATE: 20200906
